FAERS Safety Report 18976517 (Version 2)
Quarter: 2021Q2

REPORT INFORMATION
  Report Type: Spontaneous
  Country: US (occurrence: US)
  Receive Date: 20210305
  Receipt Date: 20210525
  Transmission Date: 20210717
  Serious: No
  Sender: FDA-Public Use
  Company Number: US-GALDERMA-US2020027738

PATIENT
  Age: 46 Year
  Sex: Female

DRUGS (2)
  1. DIFFERIN GEL [Suspect]
     Active Substance: ADAPALENE
     Indication: SKIN WRINKLING
     Dosage: 0.1%
     Route: 061
     Dates: start: 20200605, end: 20200605
  2. VASELINE PURE [Concomitant]
     Active Substance: PETROLATUM
     Indication: PRODUCT USED FOR UNKNOWN INDICATION

REACTIONS (7)
  - Intentional product use issue [Recovered/Resolved]
  - Ocular hyperaemia [Recovered/Resolved]
  - Eye swelling [Recovered/Resolved]
  - Product container seal issue [Recovered/Resolved]
  - Eye pruritus [Recovered/Resolved]
  - Acne [Recovered/Resolved]
  - Product label issue [Recovered/Resolved]

NARRATIVE: CASE EVENT DATE: 20200605
